FAERS Safety Report 15789294 (Version 2)
Quarter: 2019Q1

REPORT INFORMATION
  Report Type: Report from Study
  Country: US (occurrence: US)
  Receive Date: 20190104
  Receipt Date: 20190122
  Transmission Date: 20190417
  Serious: Yes (Hospitalization)
  Sender: FDA-Public Use
  Company Number: US-ROCHE-2191952

PATIENT
  Age: 68 Year
  Sex: Female
  Weight: 50.6 kg

DRUGS (18)
  1. SENNOSIDES A + B [Concomitant]
     Active Substance: SENNOSIDES A AND B
  2. NYSTATIN. [Concomitant]
     Active Substance: NYSTATIN
  3. HYDROXYZINE [Concomitant]
     Active Substance: HYDROXYZINE HYDROCHLORIDE
  4. MACROGOL [Concomitant]
     Active Substance: POLYETHYLENE GLYCOLS
  5. MAGNESIUM OXIDE. [Concomitant]
     Active Substance: MAGNESIUM OXIDE
  6. CABOZANTINIB [Suspect]
     Active Substance: CABOZANTINIB
     Indication: NEOPLASM
     Dosage: DATE OF MOST RECENT DOSE: 17/SEP/2018
     Route: 048
     Dates: start: 20180725
  7. ONDANSETRON [Concomitant]
     Active Substance: ONDANSETRON
  8. LACOSAMIDE. [Concomitant]
     Active Substance: LACOSAMIDE
  9. PROCHLORPERAZINE. [Concomitant]
     Active Substance: PROCHLORPERAZINE
  10. LEVETIRACETAM. [Concomitant]
     Active Substance: LEVETIRACETAM
  11. FAMOTIDINE. [Concomitant]
     Active Substance: FAMOTIDINE
  12. ACETAMINOPHEN. [Concomitant]
     Active Substance: ACETAMINOPHEN
  13. BISACODYL. [Concomitant]
     Active Substance: BISACODYL
  14. ATEZOLIZUMAB. [Suspect]
     Active Substance: ATEZOLIZUMAB
     Indication: NEOPLASM
     Dosage: DATE OF MOST RECENT DOSE: 07/SEP/2018
     Route: 042
     Dates: start: 20180725
  15. ATORVASTATIN [Concomitant]
     Active Substance: ATORVASTATIN
  16. HYOSCINE [Concomitant]
     Active Substance: SCOPOLAMINE
  17. CHLORTHALIDONE. [Suspect]
     Active Substance: CHLORTHALIDONE
     Indication: NEOPLASM
     Route: 065
  18. PHENYTOIN. [Concomitant]
     Active Substance: PHENYTOIN

REACTIONS (1)
  - Hyponatraemia [Recovered/Resolved]

NARRATIVE: CASE EVENT DATE: 20180917
